FAERS Safety Report 8562709-8 (Version None)
Quarter: 2012Q3

REPORT INFORMATION
  Report Type: 
  Country: None (occurrence: None)
  Receive Date: 20120802
  Receipt Date: 20120712
  Transmission Date: 20120928
  Serious: No
  Sender: FDA-Public Use
  Company Number: US-AMGEN-USASP2012043401

PATIENT
  Age: 47 Year
  Sex: Female

DRUGS (1)
  1. ENBREL [Suspect]
     Indication: PSORIASIS
     Dosage: 50 MG, 2 TIMES/WK
     Dates: start: 20120419

REACTIONS (6)
  - MALAISE [None]
  - PAIN [None]
  - PHOTOPHOBIA [None]
  - NAUSEA [None]
  - VOMITING [None]
  - INSOMNIA [None]
